FAERS Safety Report 5375901-0 (Version None)
Quarter: 2007Q2

REPORT INFORMATION
  Report Type: 
  Country: None (occurrence: None)
  Receive Date: 20070627
  Receipt Date: 20070627
  Transmission Date: 20071010
  Serious: Yes (Hospitalization)
  Sender: FDA-Public Use
  Company Number: None

PATIENT
  Sex: Female
  Weight: 58.6 kg

DRUGS (1)
  1. CYTARABINE [Suspect]

REACTIONS (8)
  - ATRIAL TACHYCARDIA [None]
  - CELLULITIS [None]
  - DYSPHAGIA [None]
  - FEBRILE NEUTROPENIA [None]
  - HERPES SIMPLEX [None]
  - LIP ULCERATION [None]
  - PAIN [None]
  - PHARYNGITIS [None]
